FAERS Safety Report 7068060-X (Version None)
Quarter: 2010Q4

REPORT INFORMATION
  Report Type: 
  Country: None (occurrence: None)
  Receive Date: 20101027
  Receipt Date: 20101027
  Transmission Date: 20110411
  Serious: Yes (Disabling)
  Sender: FDA-Public Use
  Company Number: None

PATIENT
  Age: 42 Year
  Sex: Female
  Weight: 58.9676 kg

DRUGS (2)
  1. ZONEGRAN [Suspect]
     Indication: CONVULSION
     Dates: start: 20030708, end: 20030908
  2. ZONEGRAN [Suspect]
     Indication: EPILEPSY
     Dates: start: 20030708, end: 20030908

REACTIONS (22)
  - AMNESIA [None]
  - BASEDOW'S DISEASE [None]
  - CEREBROVASCULAR ACCIDENT [None]
  - COMPLEX PARTIAL SEIZURES [None]
  - CONDITION AGGRAVATED [None]
  - DRUG HYPERSENSITIVITY [None]
  - EAR DISCOMFORT [None]
  - EAR PAIN [None]
  - EYE MOVEMENT DISORDER [None]
  - EYE PAIN [None]
  - FEELING ABNORMAL [None]
  - FLAT AFFECT [None]
  - HEADACHE [None]
  - HYPERACUSIS [None]
  - IMPAIRED WORK ABILITY [None]
  - LACRIMATION DECREASED [None]
  - MIDDLE INSOMNIA [None]
  - NERVE INJURY [None]
  - PROCEDURAL COMPLICATION [None]
  - SOMNOLENCE [None]
  - VISION BLURRED [None]
  - VISUAL ACUITY REDUCED [None]
